FAERS Safety Report 23751464 (Version 3)
Quarter: 2024Q2

REPORT INFORMATION
  Report Type: Spontaneous
  Country: US (occurrence: US)
  Receive Date: 20240417
  Receipt Date: 20240626
  Transmission Date: 20240715
  Serious: No
  Sender: FDA-Public Use
  Company Number: US-PFIZER INC-PV202400041869

PATIENT
  Age: 28 Year
  Sex: Female
  Weight: 58.967 kg

DRUGS (1)
  1. MEDROXYPROGESTERONE ACETATE [Suspect]
     Active Substance: MEDROXYPROGESTERONE ACETATE
     Indication: Menstruation irregular
     Dosage: UNK, EVERY 3 MONTHS
     Route: 058
     Dates: start: 202309

REACTIONS (4)
  - Incorrect dose administered by device [Unknown]
  - Product administered by wrong person [Unknown]
  - Syringe issue [Unknown]
  - Off label use [Unknown]
